FAERS Safety Report 10359628 (Version 1)
Quarter: 2014Q3

REPORT INFORMATION
  Report Type: Spontaneous
  Country: US (occurrence: US)
  Receive Date: 20140804
  Receipt Date: 20140804
  Transmission Date: 20150326
  Serious: No
  Sender: FDA-Public Use
  Company Number: US-009507513-1407USA005491

PATIENT
  Sex: Female

DRUGS (4)
  1. NORVASC [Concomitant]
     Active Substance: AMLODIPINE BESYLATE
     Dosage: UNK
  2. PEGINTRON [Suspect]
     Active Substance: PEGINTERFERON ALFA-2B
     Indication: HEPATITIS C
     Dosage: ONE INJECTION EVERY THURSDAY
     Route: 058
     Dates: start: 20140611
  3. ZOLOFT [Concomitant]
     Active Substance: SERTRALINE HYDROCHLORIDE
     Dosage: UNK
  4. CARBIDOL [Concomitant]
     Dosage: UNK

REACTIONS (7)
  - Fatigue [Unknown]
  - Drug dose omission [Unknown]
  - Product container issue [Unknown]
  - Migraine [Unknown]
  - Cough [Unknown]
  - Photosensitivity reaction [Unknown]
  - Dyspnoea [Unknown]

NARRATIVE: CASE EVENT DATE: 2014
